FAERS Safety Report 8337076-5 (Version None)
Quarter: 2012Q2

REPORT INFORMATION
  Report Type: 
  Country: None (occurrence: None)
  Receive Date: 20120504
  Receipt Date: 20120425
  Transmission Date: 20120825
  Serious: Yes (Hospitalization, Other)
  Sender: FDA-Public Use
  Company Number: US-MUTUAL PHARMACEUTICAL COMPANY, INC.-CLHC20120032

PATIENT
  Sex: Male
  Weight: 108.96 kg

DRUGS (4)
  1. COLCRYS [Suspect]
     Indication: GOUT
     Route: 048
     Dates: start: 20120101
  2. ALLOPURINOL [Concomitant]
     Indication: GOUT
     Route: 048
  3. HYDROCODONE BITARTRATE AND ACETAMINOPHEN [Concomitant]
     Indication: PAIN
     Route: 048
  4. COLCHICINE [Suspect]
     Indication: GOUT
     Route: 048
     Dates: start: 20010101

REACTIONS (6)
  - PANCREATITIS [None]
  - DEHYDRATION [None]
  - DIARRHOEA [None]
  - PYREXIA [None]
  - ABDOMINAL PAIN UPPER [None]
  - VOMITING [None]
